FAERS Safety Report 19681390 (Version 1)
Quarter: 2021Q3

REPORT INFORMATION
  Report Type: Spontaneous
  Country: US (occurrence: US)
  Receive Date: 20210810
  Receipt Date: 20210810
  Transmission Date: 20211014
  Serious: No
  Sender: FDA-Public Use
  Company Number: US-IGSA-BIG0013570

PATIENT
  Sex: Male

DRUGS (18)
  1. COVID?19 VACCINE NOS. [Suspect]
     Active Substance: COVID-19 VACCINE NOS
  2. VITAMIN D3 [Concomitant]
     Active Substance: CHOLECALCIFEROL
  3. TESTOSTERONE. [Concomitant]
     Active Substance: TESTOSTERONE
  4. CRESTOR [Concomitant]
     Active Substance: ROSUVASTATIN CALCIUM
  5. PLAVIX [Concomitant]
     Active Substance: CLOPIDOGREL BISULFATE
  6. ALPHA LIPOIC ACID [Concomitant]
     Active Substance: .ALPHA.-LIPOIC ACID
  7. RAYOS [Concomitant]
     Active Substance: PREDNISONE
  8. NUPLAZID [Suspect]
     Active Substance: PIMAVANSERIN TARTRATE
     Indication: PARKINSON^S DISEASE
     Dosage: 34 MILLIGRAM, QD
     Route: 048
     Dates: start: 202008
  9. FINASTERIDE. [Concomitant]
     Active Substance: FINASTERIDE
  10. SINEMET [Concomitant]
     Active Substance: CARBIDOPA\LEVODOPA
  11. EXELON [Concomitant]
     Active Substance: RIVASTIGMINE TARTRATE
  12. MYRBETRIQ [Concomitant]
     Active Substance: MIRABEGRON
  13. IRON [Concomitant]
     Active Substance: IRON
  14. ISRADIPINE. [Concomitant]
     Active Substance: ISRADIPINE
  15. ASPIRIN (E.C.) [Concomitant]
     Active Substance: ASPIRIN
  16. GAMMAKED [Suspect]
     Active Substance: HUMAN IMMUNOGLOBULIN G
     Indication: PRODUCT USED FOR UNKNOWN INDICATION
     Dosage: UNK UNK, Q.2WK.
  17. FLOMAX RELIEF [Concomitant]
     Active Substance: TAMSULOSIN HYDROCHLORIDE
  18. FLOMAX [Concomitant]
     Active Substance: TAMSULOSIN HYDROCHLORIDE

REACTIONS (1)
  - Malaise [Unknown]
